FAERS Safety Report 13609113 (Version 2)
Quarter: 2018Q1

REPORT INFORMATION
  Report Type: Spontaneous
  Country: US (occurrence: US)
  Receive Date: 20170602
  Receipt Date: 20180207
  Transmission Date: 20180508
  Serious: No
  Sender: FDA-Public Use
  Company Number: US-CELGENEUS-USA-20170506728

PATIENT
  Age: 81 Year
  Sex: Female

DRUGS (1)
  1. POMALYST [Suspect]
     Active Substance: POMALIDOMIDE
     Indication: PLASMA CELL MYELOMA RECURRENT
     Dosage: 2 MILLIGRAM
     Route: 048
     Dates: start: 20170420, end: 20170422

REACTIONS (7)
  - Eye disorder [Unknown]
  - Disturbance in attention [Unknown]
  - Disorientation [Unknown]
  - Neuropathy peripheral [Unknown]
  - Pruritus [Unknown]
  - Confusional state [Unknown]
  - Gait inability [Unknown]

NARRATIVE: CASE EVENT DATE: 201704
